FAERS Safety Report 7737192-2 (Version None)
Quarter: 2011Q3

REPORT INFORMATION
  Report Type: 
  Country: None (occurrence: None)
  Receive Date: 20110908
  Receipt Date: 20110905
  Transmission Date: 20111222
  Serious: Yes (Life-Threatening, Hospitalization)
  Sender: FDA-Public Use
  Company Number: GB-ROXANE LABORATORIES, INC.-2011-RO-01213RO

PATIENT
  Age: 67 Year
  Sex: Female

DRUGS (5)
  1. VALPROATE SODIUM [Suspect]
     Indication: CONVULSION
  2. FLECAINIDE ACETATE [Suspect]
     Indication: ATRIAL FIBRILLATION
  3. VERAPAMIL [Suspect]
     Indication: ATRIAL FIBRILLATION
  4. FUROSEMIDE [Suspect]
  5. ASPIRIN [Suspect]

REACTIONS (4)
  - ELECTROCARDIOGRAM QT PROLONGED [None]
  - VENTRICULAR FIBRILLATION [None]
  - CARDIAC ARREST [None]
  - TORSADE DE POINTES [None]
